FAERS Safety Report 15984075 (Version 1)
Quarter: 2019Q1

REPORT INFORMATION
  Report Type: Spontaneous
  Country: US (occurrence: US)
  Receive Date: 20190220
  Receipt Date: 20190220
  Transmission Date: 20190418
  Serious: No
  Sender: FDA-Public Use
  Company Number: US-TEVA-2019-US-1004356

PATIENT
  Age: 48 Year
  Sex: Female

DRUGS (1)
  1. TRIAMCINOLONE [Suspect]
     Active Substance: TRIAMCINOLONE
     Indication: UPPER RESPIRATORY TRACT INFECTION
     Dosage: ONE INJECTION
     Route: 030

REACTIONS (1)
  - Injection site atrophy [Not Recovered/Not Resolved]
